FAERS Safety Report 7542169-6 (Version None)
Quarter: 2011Q2

REPORT INFORMATION
  Report Type: 
  Country: None (occurrence: None)
  Receive Date: 20110606
  Receipt Date: 20110524
  Transmission Date: 20111010
  Serious: Yes (Hospitalization)
  Sender: FDA-Public Use
  Company Number: 2011MA006530

PATIENT
  Age: 78 Year
  Sex: Male

DRUGS (15)
  1. METFORMIN HYDROCHLORIDE [Suspect]
     Dosage: 2.6 G; QD; PO
     Route: 048
     Dates: start: 20080410, end: 20110301
  2. NITROMEX [Concomitant]
  3. CANODERM [Concomitant]
  4. LASIX [Concomitant]
  5. TOLTERODINE TARTRATE [Concomitant]
  6. SIMVASTATIN [Concomitant]
  7. FENURIL [Concomitant]
  8. SUPREFACT [Concomitant]
  9. WARAN [Concomitant]
  10. IMDUR [Concomitant]
  11. OMEPRAZOLE [Concomitant]
  12. ATENOLOL [Concomitant]
  13. ENALAPRIL MALEATE [Suspect]
     Dosage: 20 MG; QD; PO
     Route: 048
     Dates: start: 20080411, end: 20110301
  14. GLYBURIDE [Suspect]
     Dosage: 11 MG; QD; PO
     Route: 048
     Dates: start: 20080410
  15. INNOHEP [Concomitant]

REACTIONS (7)
  - KLEBSIELLA INFECTION [None]
  - CULTURE URINE POSITIVE [None]
  - BLOOD CREATININE INCREASED [None]
  - DYSPNOEA [None]
  - TROPONIN T INCREASED [None]
  - GENERAL PHYSICAL CONDITION ABNORMAL [None]
  - HYPOGLYCAEMIA [None]
